FAERS Safety Report 16267163 (Version 4)
Quarter: 2020Q4

REPORT INFORMATION
  Report Type: Spontaneous
  Country: US (occurrence: US)
  Receive Date: 20190502
  Receipt Date: 20201125
  Transmission Date: 20210113
  Serious: Yes (Death, Other)
  Sender: FDA-Public Use
  Company Number: US-BEH-2019101709

PATIENT
  Age: 89 Year
  Sex: Female

DRUGS (6)
  1. ALBURX [Suspect]
     Active Substance: ALBUMIN HUMAN
     Dosage: 12.5 GRAM, 4 VIALS
     Route: 065
     Dates: start: 20190328, end: 20190328
  2. ALBURX [Suspect]
     Active Substance: ALBUMIN HUMAN
     Dosage: 12.5 GRAM, 2 VIALS
     Route: 065
     Dates: start: 20190401, end: 20190401
  3. ALBURX [Suspect]
     Active Substance: ALBUMIN HUMAN
     Dosage: 12.5 GRAM, 10 VIALS
     Route: 065
     Dates: start: 20190303, end: 20190306
  4. ALBURX [Suspect]
     Active Substance: ALBUMIN HUMAN
     Dosage: 12.5 GRAM, 2 VIALS
     Route: 065
     Dates: start: 20190415, end: 20190415
  5. ALBURX [Suspect]
     Active Substance: ALBUMIN HUMAN
     Dosage: 12.5 GRAM, 7 VIALS
     Route: 065
     Dates: start: 20190327, end: 20190327
  6. ALBURX [Suspect]
     Active Substance: ALBUMIN HUMAN
     Dosage: 12.5 GRAM, 4 VIALS
     Route: 065
     Dates: start: 20190330, end: 20190330

REACTIONS (3)
  - Serratia sepsis [Fatal]
  - Pyrexia [Fatal]
  - Septic shock [Fatal]

NARRATIVE: CASE EVENT DATE: 201904
